FAERS Safety Report 7085014-8 (Version None)
Quarter: 2010Q4

REPORT INFORMATION
  Report Type: 
  Country: None (occurrence: None)
  Receive Date: 20101027
  Receipt Date: 20101019
  Transmission Date: 20110411
  Serious: Yes (Hospitalization)
  Sender: FDA-Public Use
  Company Number: 2010SP056174

PATIENT
  Sex: Male

DRUGS (3)
  1. INTEGRILIN [Suspect]
     Indication: PRODUCT USED FOR UNKNOWN INDICATION
  2. HEPARIN [Suspect]
     Indication: PRODUCT USED FOR UNKNOWN INDICATION
  3. PLAVIX [Suspect]
     Indication: PRODUCT USED FOR UNKNOWN INDICATION

REACTIONS (2)
  - CHILLS [None]
  - PLATELET COUNT DECREASED [None]
